FAERS Safety Report 5133409-1 (Version None)
Quarter: 2006Q4

REPORT INFORMATION
  Report Type: 
  Country: None (occurrence: None)
  Receive Date: 20061024
  Receipt Date: 20061013
  Transmission Date: 20070319
  Serious: Yes (Other)
  Sender: FDA-Public Use
  Company Number: GB-JNJFOC-20061003980

PATIENT
  Sex: Male

DRUGS (3)
  1. LOPERAMIDE [Suspect]
     Indication: ANOREXIA
     Route: 065
  2. LOPERAMIDE [Suspect]
     Indication: ABDOMINAL PAIN UPPER
     Route: 065
  3. LOPERAMIDE [Suspect]
     Indication: DIARRHOEA
     Route: 065

REACTIONS (1)
  - APPENDICITIS PERFORATED [None]
